FAERS Safety Report 5402315-7 (Version None)
Quarter: 2007Q3

REPORT INFORMATION
  Report Type: 
  Country: None (occurrence: None)
  Receive Date: 20070730
  Receipt Date: 20070730
  Transmission Date: 20080115
  Serious: No
  Sender: FDA-Public Use
  Company Number: None

PATIENT
  Sex: Female
  Weight: 89.3586 kg

DRUGS (2)
  1. LISINOPRIL [Suspect]
     Indication: HYPERTENSION
     Dosage: ONE PO Q DAY
     Route: 048
     Dates: start: 20070713
  2. LISINOPRIL [Suspect]
     Indication: HYPERTENSION
     Dosage: ONE PO Q DAY
     Route: 048
     Dates: start: 20070718

REACTIONS (2)
  - HEADACHE [None]
  - PHOTOPHOBIA [None]
